FAERS Safety Report 25271066 (Version 1)
Quarter: 2025Q2

REPORT INFORMATION
  Report Type: Spontaneous
  Country: GB (occurrence: GB)
  Receive Date: 20250506
  Receipt Date: 20250506
  Transmission Date: 20250716
  Serious: Yes (Disabling, Other)
  Sender: ORGANON
  Company Number: None

PATIENT
  Sex: Female
  Weight: 47 kg

DRUGS (1)
  1. BETAMETHASONE DIPROPIONATE [Suspect]
     Active Substance: BETAMETHASONE DIPROPIONATE
     Indication: Hand dermatitis
     Dates: end: 20240110

REACTIONS (2)
  - Skin injury [Recovering/Resolving]
  - Medication error [Unknown]

NARRATIVE: CASE EVENT DATE: 20231001
